FAERS Safety Report 8116865-6 (Version None)
Quarter: 2012Q1

REPORT INFORMATION
  Report Type: 
  Country: None (occurrence: None)
  Receive Date: 20120206
  Receipt Date: 20120203
  Transmission Date: 20120608
  Serious: Yes (Other)
  Sender: FDA-Public Use
  Company Number: PHFR2010IE05728

PATIENT
  Sex: Female

DRUGS (2)
  1. CLOZARIL [Suspect]
     Indication: SCHIZOPHRENIA
     Dosage: UNK
     Dates: start: 20000215
  2. CLOZARIL [Suspect]
     Route: 048
     Dates: start: 20000215, end: 20110107

REACTIONS (4)
  - URINARY TRACT INFECTION [None]
  - DELIRIUM [None]
  - GRAND MAL CONVULSION [None]
  - DEEP VEIN THROMBOSIS [None]
